FAERS Safety Report 9185961 (Version 1)
Quarter: 2013Q1

REPORT INFORMATION
  Report Type: Spontaneous
  Country: US (occurrence: None)
  Receive Date: 20120628
  Receipt Date: 20120628
  Transmission Date: 20140127
  Serious: Yes (Disabling)
  Sender: FDA-Public Use
  Company Number: PHHY2011US38093

PATIENT
  Age: 63 Year
  Sex: Female
  Weight: 52.6 kg

DRUGS (2)
  1. RECLAST (ZOLEDRONATE) SOLUTION FOR INJECTION [Suspect]
     Indication: OSTEOPOROSIS
     Route: 042
     Dates: start: 20110324, end: 20110324
  2. EFFEXOR (VENLAFAXINE HYDROCHLORIDE) UNKNOWN [Concomitant]

REACTIONS (5)
  - Musculoskeletal pain [None]
  - Neck pain [None]
  - Back pain [None]
  - Paraesthesia [None]
  - Arthralgia [None]
